FAERS Safety Report 6681240-8 (Version None)
Quarter: 2010Q2

REPORT INFORMATION
  Report Type: 
  Country: None (occurrence: None)
  Receive Date: 20100414
  Receipt Date: 20091023
  Transmission Date: 20101027
  Serious: No
  Sender: FDA-Public Use
  Company Number: US-KINGPHARMUSA00001-K200901312

PATIENT
  Sex: Male
  Weight: 86.168 kg

DRUGS (5)
  1. SKELAXIN [Suspect]
     Indication: BACK DISORDER
     Dosage: 800 MG, PRN
     Route: 048
     Dates: start: 20091018, end: 20091018
  2. SKELAXIN [Suspect]
     Indication: MUSCLE SPASMS
  3. SKELAXIN [Suspect]
     Indication: PAIN
  4. LEVOTHROID [Concomitant]
     Indication: HYPOTHYROIDISM
     Dosage: 75 MG, QD
     Route: 048
  5. MICARDIS [Concomitant]
     Indication: BLOOD PRESSURE INCREASED
     Dosage: 40/12.5
     Route: 048

REACTIONS (1)
  - DRUG INEFFECTIVE [None]
